FAERS Safety Report 7550763-1 (Version None)
Quarter: 2011Q2

REPORT INFORMATION
  Report Type: 
  Country: None (occurrence: None)
  Receive Date: 20110616
  Receipt Date: 20110602
  Transmission Date: 20111010
  Serious: Yes (Hospitalization)
  Sender: FDA-Public Use
  Company Number: DE-RANBAXY-2010RR-30922

PATIENT
  Age: 63 Year
  Sex: Female
  Weight: 86 kg

DRUGS (9)
  1. CONJUGATED ESTROGENS [Suspect]
     Indication: HORMONE REPLACEMENT THERAPY
     Dosage: 0.3 MG, QD
     Route: 048
     Dates: start: 20040101, end: 20080911
  2. LISINOPRIL [Suspect]
     Indication: HYPERTENSION
     Dosage: 20 MG, QD
     Route: 048
     Dates: start: 20010101
  3. JUNIK [Concomitant]
     Indication: ASTHMA
     Dosage: 100 UG, BID
     Route: 055
     Dates: start: 20050101
  4. INFLUSPLIT SSW [Concomitant]
     Indication: INFLUENZA IMMUNISATION
     Dosage: 0.5 ML, QD
     Route: 058
     Dates: start: 20080908, end: 20080908
  5. VALPROIC ACID [Suspect]
     Indication: BIPOLAR I DISORDER
     Dosage: 500 MG, QD
     Route: 048
     Dates: start: 20080820, end: 20080911
  6. AMITRIPTYLINE HYDROCHLORIDE [Suspect]
     Indication: DEPRESSION
     Dosage: 100 MG, BID
     Route: 048
     Dates: start: 20040101, end: 20080819
  7. SIMVASTATIN [Suspect]
     Indication: HYPERLIPIDAEMIA
     Dosage: 10 MG, QD
     Route: 048
     Dates: start: 20000101
  8. BISOPROLOL FUMARATE [Suspect]
     Indication: HYPERTENSION
     Dosage: 2.5 MG, BID
     Route: 048
     Dates: start: 19950101
  9. ASPIRIN [Suspect]
     Indication: CORONARY ARTERY DISEASE
     Dosage: 100 MG, QD
     Route: 048
     Dates: start: 20010101

REACTIONS (1)
  - LIVER INJURY [None]
